FAERS Safety Report 13103874 (Version 1)
Quarter: 2017Q1

REPORT INFORMATION
  Report Type: Spontaneous
  Country: US (occurrence: US)
  Receive Date: 20170111
  Receipt Date: 20170111
  Transmission Date: 20170428
  Serious: Yes (Death, Other)
  Sender: FDA-Public Use
  Company Number: US-BAUSCH-BL-2017-000090

PATIENT
  Age: 59 Year
  Sex: Male

DRUGS (1)
  1. THEOPHYLLINE [Suspect]
     Active Substance: THEOPHYLLINE ANHYDROUS
     Indication: PRODUCT USED FOR UNKNOWN INDICATION
     Route: 048

REACTIONS (8)
  - Blood pressure systolic decreased [Unknown]
  - Hypotension [Unknown]
  - Completed suicide [Fatal]
  - Haemoglobin decreased [Unknown]
  - Cerebral infarction [Unknown]
  - Agitation [Unknown]
  - Heart rate abnormal [Unknown]
  - Confusional state [Unknown]
